FAERS Safety Report 8334852 (Version 2)
Quarter: 2012Q4

REPORT INFORMATION
  Report Type: 
  Country: US (occurrence: US)
  Receive Date: 20120112
  Receipt Date: 20120927
  Transmission Date: 20130627
  Serious: Yes (Death, Hospitalization)
  Sender: FDA-Public Use
  Company Number: US-GLAXOSMITHKLINE-A0814919A

PATIENT
  Age: 50 Year
  Sex: Female
  Weight: 147.7 kg

DRUGS (6)
  1. AVANDIA [Suspect]
     Indication: DIABETES MELLITUS
     Dosage: 4MG Per day
     Route: 048
     Dates: start: 2003
  2. ATENOLOL [Concomitant]
  3. SINGULAIR [Concomitant]
  4. LYRICA [Concomitant]
  5. MERIDIA [Concomitant]
  6. METFORMIN [Concomitant]

REACTIONS (4)
  - Cardiopulmonary failure [Fatal]
  - Brain injury [Fatal]
  - Cerebrovascular accident [Unknown]
  - Transient ischaemic attack [Unknown]
